FAERS Safety Report 16335835 (Version 1)
Quarter: 2019Q2

REPORT INFORMATION
  Report Type: Spontaneous
  Country: SE (occurrence: SE)
  Receive Date: 20190521
  Receipt Date: 20190521
  Transmission Date: 20190711
  Serious: Yes (Hospitalization)
  Sender: FDA-Public Use
  Company Number: SE-ACCORD-128368

PATIENT
  Age: 41 Year
  Sex: Female
  Weight: 90 kg

DRUGS (2)
  1. AMITRIPTYLINE [Suspect]
     Active Substance: AMITRIPTYLINE
     Indication: TRIGEMINAL NEURALGIA
     Dosage: 10 MG OVERNIGHT
     Dates: start: 20190321, end: 20190324
  2. AMOXICILLIN/CLAVULANIC ACID [Concomitant]
     Dates: start: 20190313

REACTIONS (5)
  - Neuromuscular pain [Recovering/Resolving]
  - Vomiting [Recovering/Resolving]
  - Pain in extremity [Recovering/Resolving]
  - Musculoskeletal chest pain [Recovering/Resolving]
  - Migraine [Recovering/Resolving]

NARRATIVE: CASE EVENT DATE: 20190322
